FAERS Safety Report 6315227-1 (Version None)
Quarter: 2009Q3

REPORT INFORMATION
  Report Type: 
  Country: None (occurrence: None)
  Receive Date: 20090819
  Receipt Date: 20090807
  Transmission Date: 20100115
  Serious: Yes (Other)
  Sender: FDA-Public Use
  Company Number: PHEH2009US08989

PATIENT
  Sex: Female

DRUGS (1)
  1. ELIDEL [Suspect]
     Dosage: UNK, UNK
     Route: 061
     Dates: start: 20090804

REACTIONS (3)
  - APPLICATION SITE IRRITATION [None]
  - DRUG INEFFECTIVE [None]
  - SKIN EXFOLIATION [None]
